FAERS Safety Report 23406077 (Version 1)
Quarter: 2024Q1

REPORT INFORMATION
  Report Type: Spontaneous
  Country: US (occurrence: None)
  Receive Date: 20240114
  Receipt Date: 20240114
  Transmission Date: 20240409
  Serious: Yes (Other)
  Sender: FDA-Public Use
  Company Number: None

PATIENT
  Age: 69 Year
  Sex: Female
  Weight: 47.7 kg

DRUGS (2)
  1. TRIAMCINOLONE [Suspect]
     Active Substance: TRIAMCINOLONE
     Indication: Periarthritis
     Dates: start: 20240104
  2. METOPROLOL [Concomitant]
     Active Substance: METOPROLOL

REACTIONS (9)
  - Insomnia [None]
  - Swelling face [None]
  - Swelling face [None]
  - Constipation [None]
  - Agitation [None]
  - Peripheral swelling [None]
  - Dysgeusia [None]
  - Rash [None]
  - Pruritus [None]

NARRATIVE: CASE EVENT DATE: 20240104
